FAERS Safety Report 8063906-0 (Version None)
Quarter: 2012Q1

REPORT INFORMATION
  Report Type: 
  Country: None (occurrence: None)
  Receive Date: 20120117
  Receipt Date: 20111229
  Transmission Date: 20120608
  Serious: Yes (Other)
  Sender: FDA-Public Use
  Company Number: DSA_48815_2012

PATIENT
  Sex: Female

DRUGS (1)
  1. NIFEDIPINE [Suspect]
     Indication: PRODUCT USED FOR UNKNOWN INDICATION
     Dosage: 30 MG QD, EVERY 24 HOURS
     Dates: start: 20100907

REACTIONS (9)
  - INSOMNIA [None]
  - HYPOTENSION [None]
  - OEDEMA PERIPHERAL [None]
  - PAIN [None]
  - CHOLECYSTECTOMY [None]
  - SYNCOPE [None]
  - INTESTINAL OBSTRUCTION [None]
  - DIZZINESS [None]
  - PROCTALGIA [None]
